FAERS Safety Report 9058323 (Version 6)
Quarter: 2013Q2

REPORT INFORMATION
  Report Type: Spontaneous
  Country: JP (occurrence: JP)
  Receive Date: 20130211
  Receipt Date: 20130603
  Transmission Date: 20140414
  Serious: Yes (Death, Other)
  Sender: FDA-Public Use
  Company Number: JP-JNJFOC-20130200539

PATIENT
  Age: 36 Year
  Sex: Male
  Weight: 72 kg

DRUGS (8)
  1. RISPERDAL CONSTA [Suspect]
     Indication: SCHIZOPHRENIA
     Route: 030
     Dates: start: 20121113, end: 20121209
  2. RISPERDAL CONSTA [Suspect]
     Indication: SCHIZOPHRENIA
     Route: 030
     Dates: start: 20121210, end: 20130106
  3. RISPERDAL CONSTA [Suspect]
     Indication: SCHIZOPHRENIA
     Route: 030
     Dates: start: 20130107, end: 20130120
  4. ZYPREXA [Suspect]
     Indication: SCHIZOPHRENIA
     Route: 048
     Dates: start: 20070723, end: 20130107
  5. ABILIFY [Suspect]
     Indication: SCHIZOPHRENIA
     Route: 048
     Dates: start: 20070723, end: 20130107
  6. MUCOSTA [Concomitant]
     Indication: GASTRITIS
     Route: 048
     Dates: start: 20090914, end: 20130107
  7. BLADDERON [Concomitant]
     Indication: POLLAKIURIA
     Route: 048
     Dates: start: 20121227, end: 20130107
  8. NON-PYRINE COLD PREPARATION [Concomitant]
     Indication: PRODUCT USED FOR UNKNOWN INDICATION
     Route: 065
     Dates: start: 20120220, end: 20120305

REACTIONS (2)
  - Acute myocardial infarction [Fatal]
  - Asthenia [Unknown]
